FAERS Safety Report 8924271 (Version 1)
Quarter: 2012Q4

REPORT INFORMATION
  Report Type: 
  Country: US (occurrence: US)
  Receive Date: 20121127
  Receipt Date: 20121127
  Transmission Date: 20130627
  Serious: Yes (Other)
  Sender: FDA-Public Use
  Company Number: US-BAYER-2012-121852

PATIENT
  Age: 24 Year
  Sex: Female

DRUGS (3)
  1. OCELLA [Suspect]
     Dosage: UNK
     Dates: start: 20080725
  2. YASMIN [Suspect]
     Dosage: UNK
     Dates: start: 20050818, end: 20080628
  3. HYDROCODONE W/APAP [Concomitant]
     Dosage: 5-500 mg 1 tablet by mouth every 4 to 6 hours as needed

REACTIONS (4)
  - Subclavian vein thrombosis [Not Recovered/Not Resolved]
  - Axillary vein thrombosis [Not Recovered/Not Resolved]
  - Deep vein thrombosis [Not Recovered/Not Resolved]
  - Thrombophlebitis superficial [Not Recovered/Not Resolved]
